FAERS Safety Report 5733692-5 (Version None)
Quarter: 2008Q2

REPORT INFORMATION
  Report Type: 
  Country: None (occurrence: None)
  Receive Date: 20080509
  Receipt Date: 20080327
  Transmission Date: 20081010
  Serious: No
  Sender: FDA-Public Use
  Company Number: A0717856A

PATIENT
  Age: 51 Year
  Sex: Female

DRUGS (3)
  1. ALTABAX [Suspect]
     Route: 061
     Dates: start: 20080301
  2. NIMBEX [Concomitant]
  3. BACTROBAN [Concomitant]

REACTIONS (2)
  - ERYTHEMA [None]
  - RASH [None]
